FAERS Safety Report 20475125 (Version 1)
Quarter: 2022Q1

REPORT INFORMATION
  Report Type: Spontaneous
  Country: US (occurrence: None)
  Receive Date: 20220214
  Receipt Date: 20220214
  Transmission Date: 20220424
  Serious: No
  Sender: FDA-Public Use
  Company Number: None

PATIENT
  Age: 81 Year
  Sex: Male
  Weight: 58.64 kg

DRUGS (11)
  1. IMATINIB [Suspect]
     Active Substance: IMATINIB
     Indication: Chronic myeloid leukaemia
     Dosage: FREQUENCY : DAILY;?
     Route: 048
     Dates: start: 20211129
  2. ALLOPURINOL [Concomitant]
     Active Substance: ALLOPURINOL
  3. HYDROCHLOROTHIAZIDE [Concomitant]
     Active Substance: HYDROCHLOROTHIAZIDE
  4. HYDROCORTISONE [Concomitant]
     Active Substance: HYDROCORTISONE
  5. HYDROXYUREA [Concomitant]
     Active Substance: HYDROXYUREA
  6. LASIX [Concomitant]
     Active Substance: FUROSEMIDE
  7. VITAMINS [Concomitant]
     Active Substance: VITAMINS
  8. PANTOPRAZOLE [Concomitant]
     Active Substance: PANTOPRAZOLE
  9. PRAVACHOL [Concomitant]
     Active Substance: PRAVASTATIN SODIUM
  10. SPIRONOLACTONE [Concomitant]
     Active Substance: SPIRONOLACTONE
  11. TERAZOSIN [Concomitant]
     Active Substance: TERAZOSIN HYDROCHLORIDE

REACTIONS (1)
  - Rash [None]

NARRATIVE: CASE EVENT DATE: 20220214
